FAERS Safety Report 20489661 (Version 1)
Quarter: 2022Q1

REPORT INFORMATION
  Report Type: Spontaneous
  Country: US (occurrence: None)
  Receive Date: 20220218
  Receipt Date: 20220218
  Transmission Date: 20220423
  Serious: Yes (Other)
  Sender: FDA-Public Use
  Company Number: 2022A074453

PATIENT
  Sex: Female

DRUGS (1)
  1. SYMBICORT [Suspect]
     Active Substance: BUDESONIDE\FORMOTEROL FUMARATE DIHYDRATE
     Indication: Asthma
     Dosage: UG/INHAL Q12H 2 PUFFS TWICE A DAY
     Route: 055
     Dates: start: 2013

REACTIONS (6)
  - Recurrent cancer [Not Recovered/Not Resolved]
  - Pyrexia [Unknown]
  - Paranasal sinus discomfort [Unknown]
  - Pruritus [Unknown]
  - Hypersensitivity [Unknown]
  - Product use issue [Unknown]
